FAERS Safety Report 16062000 (Version 3)
Quarter: 2019Q3

REPORT INFORMATION
  Report Type: Spontaneous
  Country: US (occurrence: US)
  Receive Date: 20190312
  Receipt Date: 20190722
  Transmission Date: 20191004
  Serious: Yes (Hospitalization, Other)
  Sender: FDA-Public Use
  Company Number: US-PFIZER INC-2019100434

PATIENT
  Age: 68 Year
  Sex: Female
  Weight: 85 kg

DRUGS (7)
  1. PROAIR HFA [Concomitant]
     Active Substance: ALBUTEROL SULFATE
     Dosage: UNK
  2. AMLODIPINE [Concomitant]
     Active Substance: AMLODIPINE BESYLATE
     Dosage: 10 MG, UNK
  3. SINGULAIR [Concomitant]
     Active Substance: MONTELUKAST SODIUM
     Dosage: 10 MG, UNK
  4. FLUTICASONE. [Concomitant]
     Active Substance: FLUTICASONE
     Dosage: 50 UG, UNK
  5. LEVOTHYROXIN [Concomitant]
     Active Substance: LEVOTHYROXINE
     Dosage: 137 UG, UNK
  6. SUTENT [Suspect]
     Active Substance: SUNITINIB MALATE
     Indication: RENAL CANCER
     Dosage: 50 MG, CYCLIC (ONCE A DAY FOR 4WEEKS+2 WEEKS OFF)
     Route: 048
     Dates: start: 20190103, end: 20190119
  7. ADVAIR HFA [Concomitant]
     Active Substance: FLUTICASONE PROPIONATE\SALMETEROL XINAFOATE
     Dosage: UNK

REACTIONS (9)
  - Stomatitis [Recovered/Resolved]
  - Pyrexia [Recovered/Resolved]
  - Fatigue [Not Recovered/Not Resolved]
  - Malaise [Recovered/Resolved]
  - Asthenia [Recovered/Resolved]
  - Chills [Recovered/Resolved]
  - Infection [Recovered/Resolved]
  - Headache [Recovered/Resolved]
  - Liver injury [Recovered/Resolved]

NARRATIVE: CASE EVENT DATE: 20190117
